FAERS Safety Report 18262591 (Version 2)
Quarter: 2022Q2

REPORT INFORMATION
  Report Type: Spontaneous
  Country: US (occurrence: US)
  Receive Date: 20200914
  Receipt Date: 20220512
  Transmission Date: 20220721
  Serious: No
  Sender: FDA-Public Use
  Company Number: US-PFIZER INC-2020096567

PATIENT
  Age: 61 Year
  Sex: Male
  Weight: 59 kg

DRUGS (3)
  1. RAPAMUNE [Suspect]
     Active Substance: SIROLIMUS
     Indication: Liver transplant
     Dosage: 1 MG, 1X/DAY (1MG TABLET DAILY IN THE MORNING)
     Dates: start: 201008
  2. RAPAMUNE [Suspect]
     Active Substance: SIROLIMUS
     Indication: Immunosuppression
     Dosage: 1 MG, ALTERNATE DAY (0.5 MG, (1 MG TABLET EVERY OTHER DAY))
  3. METOPROLOL [Concomitant]
     Active Substance: METOPROLOL
     Indication: Hypertension
     Dosage: 25 MG, UNK
     Dates: start: 2010

REACTIONS (3)
  - Drug level increased [Unknown]
  - Intentional product misuse [Unknown]
  - Off label use [Unknown]

NARRATIVE: CASE EVENT DATE: 20100801
